FAERS Safety Report 6576599-6 (Version None)
Quarter: 2010Q1

REPORT INFORMATION
  Report Type: 
  Country: None (occurrence: None)
  Receive Date: 20100210
  Receipt Date: 20100201
  Transmission Date: 20100710
  Serious: Yes (Other)
  Sender: FDA-Public Use
  Company Number: PHHY2010BR05970

PATIENT
  Sex: Female

DRUGS (2)
  1. EXELON [Suspect]
     Indication: DEMENTIA ALZHEIMER'S TYPE
     Dosage: 9MG/5CM2 (1 PATCH PER DAY IN THE AFTERNOON PERIOD)
     Route: 062
  2. EXELON [Suspect]
     Dosage: 9MG/5CM2 (1 PATCH PER DAY IN THE MORNING PERIOD)
     Route: 062
     Dates: start: 20091001

REACTIONS (5)
  - AGITATION [None]
  - EATING DISORDER [None]
  - GASTROINTESTINAL MOTILITY DISORDER [None]
  - SOMNOLENCE [None]
  - WEIGHT INCREASED [None]
